FAERS Safety Report 5411735-6 (Version None)
Quarter: 2007Q3

REPORT INFORMATION
  Report Type: 
  Country: None (occurrence: None)
  Receive Date: 20070813
  Receipt Date: 20070809
  Transmission Date: 20080115
  Serious: Yes (Life-Threatening)
  Sender: FDA-Public Use
  Company Number: PHBS2007PH06061

PATIENT
  Age: 48 Year
  Sex: Female
  Weight: 75 kg

DRUGS (12)
  1. ZELNORM [Suspect]
     Dosage: 4 DOSES
     Route: 048
     Dates: start: 20070403, end: 20070405
  2. INSULIN [Concomitant]
  3. CLOPIDOGREL [Concomitant]
  4. ROSUVASTATIN [Concomitant]
  5. CIPROFLOXACIN [Concomitant]
  6. TRIMETAZIDINE [Concomitant]
  7. DIGOXIN [Concomitant]
  8. ENOXAPARIN SODIUM [Concomitant]
  9. TG PATCH [Concomitant]
  10. DILTIAZEM [Concomitant]
     Indication: HYPERTENSION
     Dosage: 30 MG, TID
  11. SIMVASTATIN [Concomitant]
     Indication: HYPERLIPIDAEMIA
     Dosage: 40 MG, QD
  12. GLIMEPIRIDE [Concomitant]
     Dosage: 2 MG, QD

REACTIONS (6)
  - DYSPNOEA [None]
  - ECG SIGNS OF MYOCARDIAL ISCHAEMIA [None]
  - HEART RATE IRREGULAR [None]
  - MYOCARDIAL INFARCTION [None]
  - SINUS TACHYCARDIA [None]
  - TROPONIN T INCREASED [None]
